FAERS Safety Report 9913463 (Version 2)
Quarter: 2014Q1

REPORT INFORMATION
  Report Type: Spontaneous
  Country: CN (occurrence: CN)
  Receive Date: 20140220
  Receipt Date: 20140220
  Transmission Date: 20141002
  Serious: Yes (Other)
  Sender: FDA-Public Use
  Company Number: CN-JNJFOC-20120700007

PATIENT
  Age: 28 Year
  Sex: Female

DRUGS (1)
  1. SPORANOX [Suspect]
     Indication: FUNGAL INFECTION
     Dosage: AT NIGHT AS PER DOCTOR?S ADVICE
     Route: 048
     Dates: start: 20120628, end: 2012

REACTIONS (2)
  - Abortion threatened [Recovered/Resolved]
  - Exposure during pregnancy [Recovered/Resolved]
